FAERS Safety Report 4274220-3 (Version None)
Quarter: 2004Q1

REPORT INFORMATION
  Report Type: 
  Country: None (occurrence: None)
  Receive Date: 20040115
  Receipt Date: 20040103
  Transmission Date: 20041129
  Serious: Yes (Hospitalization, Other)
  Sender: FDA-Public Use
  Company Number: 2003120922

PATIENT
  Age: 40 Year
  Sex: Female

DRUGS (3)
  1. GEODON [Suspect]
     Indication: BIPOLAR DISORDER
     Dosage: 40 MG (DAILY), ORAL
     Route: 048
     Dates: start: 20031124, end: 20031125
  2. TOPIRAMATE [Concomitant]
  3. VENLAFAXINE HCL [Concomitant]

REACTIONS (1)
  - GRAND MAL CONVULSION [None]
